FAERS Safety Report 10494532 (Version 1)
Quarter: 2014Q4

REPORT INFORMATION
  Report Type: Spontaneous
  Country: TR (occurrence: None)
  Receive Date: 20141001
  Receipt Date: 20141001
  Transmission Date: 20150528
  Serious: Yes (Hospitalization)
  Sender: FDA-Public Use
  Company Number: 2014/071

PATIENT
  Age: 46 Year
  Sex: Male

DRUGS (1)
  1. AMLODIPINE [Suspect]
     Active Substance: AMLODIPINE BESYLATE
     Indication: HYPERTENSION

REACTIONS (6)
  - Alanine aminotransferase increased [None]
  - Blood bilirubin increased [None]
  - Drug-induced liver injury [None]
  - Aspartate aminotransferase increased [None]
  - Hepatic enzyme increased [None]
  - Gamma-glutamyltransferase increased [None]
